FAERS Safety Report 5649900-5 (Version None)
Quarter: 2008Q1

REPORT INFORMATION
  Report Type: 
  Country: None (occurrence: None)
  Receive Date: 20080215
  Receipt Date: 20080204
  Transmission Date: 20080703
  Serious: Yes (Hospitalization, Other)
  Sender: FDA-Public Use
  Company Number: THYM-1000514

PATIENT
  Age: 68 Year
  Sex: Male
  Weight: 90 kg

DRUGS (5)
  1. THYMOGLOBULIN [Suspect]
     Indication: RENAL TRANSPLANT
     Dosage: 200 MG, QOD, INTRAVENOUS
     Route: 042
     Dates: start: 20070807, end: 20070810
  2. BENADRYL [Concomitant]
  3. TYLENOL (CAPLET) [Concomitant]
  4. SOLU-MEDROL [Concomitant]
  5. ENBREL [Concomitant]

REACTIONS (6)
  - CHILLS [None]
  - CYTOKINE RELEASE SYNDROME [None]
  - DYSPNOEA [None]
  - HALLUCINATION [None]
  - PYREXIA [None]
  - WHEEZING [None]
